FAERS Safety Report 18207103 (Version 1)
Quarter: 2020Q3

REPORT INFORMATION
  Report Type: Spontaneous
  Country: US (occurrence: US)
  Receive Date: 20200828
  Receipt Date: 20200828
  Transmission Date: 20201103
  Serious: Yes (Other)
  Sender: FDA-Public Use
  Company Number: US-ELI_LILLY_AND_COMPANY-US202008010919

PATIENT
  Age: 7 Year
  Sex: Male
  Weight: 14.9 kg

DRUGS (1)
  1. HUMATROPE [Suspect]
     Active Substance: SOMATROPIN
     Indication: HYPOPITUITARISM
     Dosage: 0.5 MG, DAILY
     Route: 065

REACTIONS (5)
  - Growth retardation [Unknown]
  - Off label use [Unknown]
  - Drug hypersensitivity [Unknown]
  - Thyroxine free decreased [Unknown]
  - Cyst [Unknown]

NARRATIVE: CASE EVENT DATE: 20200225
